FAERS Safety Report 9196154 (Version 1)
Quarter: 2013Q1

REPORT INFORMATION
  Report Type: Spontaneous
  Country: US (occurrence: US)
  Receive Date: 20130328
  Receipt Date: 20130328
  Transmission Date: 20140127
  Serious: Yes (Other)
  Sender: FDA-Public Use
  Company Number: US-JNJFOC-20130314559

PATIENT
  Age: 69 Year
  Sex: Female
  Weight: 51.71 kg

DRUGS (2)
  1. NEOSPORIN [Suspect]
     Indication: THERMAL BURN
     Dosage: A LITTLE BIT
     Route: 061
     Dates: start: 20130310
  2. ADVAIR [Concomitant]
     Indication: CHRONIC OBSTRUCTIVE PULMONARY DISEASE
     Dosage: 10 YEARS OR MORE
     Route: 065

REACTIONS (12)
  - Blister [Recovering/Resolving]
  - Burns first degree [Recovering/Resolving]
  - Seborrhoea [Recovering/Resolving]
  - Application site discharge [Recovering/Resolving]
  - Erythema [Recovering/Resolving]
  - Pruritus [Recovering/Resolving]
  - Rash [Recovering/Resolving]
  - Skin exfoliation [Recovering/Resolving]
  - Skin irritation [Recovering/Resolving]
  - Accidental exposure to product [Unknown]
  - Ocular hyperaemia [Recovering/Resolving]
  - Eye swelling [Recovering/Resolving]
